FAERS Safety Report 10471726 (Version 2)
Quarter: 2014Q4

REPORT INFORMATION
  Report Type: Spontaneous
  Country: IR (occurrence: IR)
  Receive Date: 20140923
  Receipt Date: 20141005
  Transmission Date: 20150528
  Serious: Yes (Hospitalization)
  Sender: FDA-Public Use
  Company Number: IR-ROCHE-1465664

PATIENT
  Sex: Female

DRUGS (2)
  1. PREDNISOLONE. [Concomitant]
     Active Substance: PREDNISOLONE
     Indication: TAKAYASU^S ARTERITIS
  2. ACTEMRA [Suspect]
     Active Substance: TOCILIZUMAB
     Indication: TAKAYASU^S ARTERITIS
     Route: 065
     Dates: start: 201407

REACTIONS (2)
  - Rectal haemorrhage [Unknown]
  - Arthritis [Unknown]

NARRATIVE: CASE EVENT DATE: 201407
